FAERS Safety Report 13652369 (Version 1)
Quarter: 2017Q2

REPORT INFORMATION
  Report Type: Spontaneous
  Country: US (occurrence: US)
  Receive Date: 20170614
  Receipt Date: 20170614
  Transmission Date: 20170830
  Serious: No
  Sender: FDA-Public Use
  Company Number: US-ROCHE-1290263

PATIENT
  Sex: Female

DRUGS (2)
  1. XELODA [Suspect]
     Active Substance: CAPECITABINE
     Indication: PRODUCT USED FOR UNKNOWN INDICATION
     Route: 065
  2. FASLODEX [Concomitant]
     Active Substance: FULVESTRANT

REACTIONS (3)
  - Disease progression [Unknown]
  - Decreased appetite [Unknown]
  - Nausea [Unknown]
